FAERS Safety Report 17067766 (Version 1)
Quarter: 2019Q4

REPORT INFORMATION
  Report Type: Report from Study
  Country: None (occurrence: US)
  Receive Date: 20191122
  Receipt Date: 20191122
  Transmission Date: 20200122
  Serious: Yes (Death)
  Sender: FDA-Public Use
  Company Number: US-ABBVIE-19K-163-2811496-00

PATIENT
  Age: 67 Year
  Sex: Male

DRUGS (3)
  1. VENCLEXTA [Suspect]
     Active Substance: VENETOCLAX
     Indication: MYELODYSPLASTIC SYNDROME
     Dosage: TAKE 3 TABLETS BY MOUTH ONCE DAILY
     Route: 048
     Dates: start: 20190531, end: 2019
  2. VENCLEXTA [Suspect]
     Active Substance: VENETOCLAX
     Indication: NEUTROPENIA
  3. VENCLEXTA [Suspect]
     Active Substance: VENETOCLAX
     Indication: SEPSIS

REACTIONS (2)
  - Death [Fatal]
  - Off label use [Unknown]

NARRATIVE: CASE EVENT DATE: 2019
